FAERS Safety Report 23282831 (Version 1)
Quarter: 2023Q4

REPORT INFORMATION
  Report Type: Spontaneous
  Country: US (occurrence: US)
  Receive Date: 20231211
  Receipt Date: 20231211
  Transmission Date: 20240110
  Serious: Yes (Other)
  Sender: FDA-Public Use
  Company Number: US-ENDO-CASE-0049377

PATIENT
  Sex: Female

DRUGS (7)
  1. ACETAMINOPHEN\OXYCODONE HYDROCHLORIDE [Suspect]
     Active Substance: ACETAMINOPHEN\OXYCODONE HYDROCHLORIDE
  2. ACETAMINOPHEN\HYDROCODONE BITARTRATE [Suspect]
     Active Substance: ACETAMINOPHEN\HYDROCODONE BITARTRATE
  3. TRAMADOL HYDROCHLORIDE [Suspect]
     Active Substance: TRAMADOL HYDROCHLORIDE
  4. BUPRENORPHINE HYDROCHLORIDE [Suspect]
     Active Substance: BUPRENORPHINE HYDROCHLORIDE
  5. CODEINE PHOSPHATE\GUAIFENESIN [Suspect]
     Active Substance: CODEINE PHOSPHATE\GUAIFENESIN
  6. OXYMORPHONE HYDROCHLORIDE [Suspect]
     Active Substance: OXYMORPHONE HYDROCHLORIDE
  7. SUBOXONE [Suspect]
     Active Substance: BUPRENORPHINE HYDROCHLORIDE\NALOXONE HYDROCHLORIDE

REACTIONS (1)
  - Dependence [Unknown]
